FAERS Safety Report 13939712 (Version 1)
Quarter: 2017Q3

REPORT INFORMATION
  Report Type: Spontaneous
  Country: CO (occurrence: CO)
  Receive Date: 20170906
  Receipt Date: 20170906
  Transmission Date: 20171127
  Serious: Yes (Other)
  Sender: FDA-Public Use
  Company Number: CO-ASTELLAS-2017US035423

PATIENT
  Age: 69 Year
  Sex: Male
  Weight: 60 kg

DRUGS (1)
  1. XTANDI [Suspect]
     Active Substance: ENZALUTAMIDE
     Indication: HORMONE-REFRACTORY PROSTATE CANCER
     Dosage: 40 MG, EVERY 6 HOURS (ALSO 160 MG DAILY)
     Route: 048
     Dates: start: 20170803

REACTIONS (2)
  - Deafness [Not Recovered/Not Resolved]
  - Inappropriate schedule of drug administration [Not Recovered/Not Resolved]

NARRATIVE: CASE EVENT DATE: 20170803
